FAERS Safety Report 4328381-8 (Version None)
Quarter: 2004Q1

REPORT INFORMATION
  Report Type: 
  Country: None (occurrence: None)
  Receive Date: 20040325
  Receipt Date: 20040110
  Transmission Date: 20041129
  Serious: Yes (Hospitalization)
  Sender: FDA-Public Use
  Company Number: USA-2004-0012433

PATIENT
  Age: 67 Year
  Sex: Male

DRUGS (1)
  1. SPECTRACEF TABLETS 200MG (CEFDITOREN PIVOXIL) [Suspect]
     Indication: LOCALISED INFECTION
     Dosage: 200 MG, BID, ORAL
     Route: 048

REACTIONS (2)
  - CLOSTRIDIUM COLITIS [None]
  - DIARRHOEA [None]
